FAERS Safety Report 5280816-2 (Version None)
Quarter: 2007Q1

REPORT INFORMATION
  Report Type: 
  Country: None (occurrence: None)
  Receive Date: 20070329
  Receipt Date: 20070322
  Transmission Date: 20070707
  Serious: Yes (Disabling)
  Sender: FDA-Public Use
  Company Number: GB-PFIZER INC-2007022550

PATIENT
  Age: 12 Year
  Sex: Male

DRUGS (1)
  1. SERTRALINE [Suspect]
     Indication: ANXIETY
     Route: 048
     Dates: start: 20060209, end: 20061113

REACTIONS (2)
  - DIVERTICULUM [None]
  - DRUG WITHDRAWAL SYNDROME [None]
